FAERS Safety Report 5113928-4 (Version None)
Quarter: 2006Q3

REPORT INFORMATION
  Report Type: 
  Country: None (occurrence: None)
  Receive Date: 20060920
  Receipt Date: 20060831
  Transmission Date: 20061208
  Serious: Yes (Hospitalization, Other)
  Sender: FDA-Public Use
  Company Number: JP200608006137

PATIENT
  Age: 62 Year
  Sex: Male
  Weight: 64.5 kg

DRUGS (20)
  1. GEMZAR [Suspect]
     Indication: LUNG SQUAMOUS CELL CARCINOMA RECURRENT
     Dosage: SEE IMAGE
     Route: 042
     Dates: start: 20060712, end: 20060802
  2. GEMZAR [Suspect]
     Indication: LUNG SQUAMOUS CELL CARCINOMA RECURRENT
     Dosage: SEE IMAGE
     Route: 042
     Dates: start: 20060816
  3. NAVELBINE [Concomitant]
  4. THERAPEUTIC RADIOPHARMACEUTICALS [Concomitant]
  5. KYTRIL [Concomitant]
  6. SULFAMETHOXAZOLE + TRIMETHOPRIM [Concomitant]
  7. PREDNISOLONE [Concomitant]
  8. FAMOTIDINE [Concomitant]
  9. CLARITHROMYCIN [Concomitant]
  10. ADONA (CARBAZOCHROME SODIUM SULFONATE) [Concomitant]
  11. TRANSAMIN /JPN/ (TRANEXAMIC ACID) [Concomitant]
  12. MAGNESIUM OXIDE [Concomitant]
  13. PANTOSIN (PANTETHINE) [Concomitant]
  14. THEO-DUR [Concomitant]
  15. CLEANAL (FUDOSTEINE) [Concomitant]
  16. BIOFERMIN R (STREPTOCOCCUS FAECALIS) [Concomitant]
  17. MUCOSOLVAN (AMBROXOL HYDROCHLORIDE) [Concomitant]
  18. PURSENNID (SENNOSIDE A+B, SENNOSIDE A+B CALCIUM) [Concomitant]
  19. RHYTHMY (RILMAZAFONE) [Concomitant]
  20. FUNGIZONE [Concomitant]

REACTIONS (6)
  - ABDOMINAL PAIN UPPER [None]
  - DECREASED APPETITE [None]
  - MALAISE [None]
  - OESOPHAGEAL CANDIDIASIS [None]
  - REFLUX OESOPHAGITIS [None]
  - WHITE BLOOD CELL COUNT DECREASED [None]
